FAERS Safety Report 6500263-2 (Version None)
Quarter: 2009Q4

REPORT INFORMATION
  Report Type: 
  Country: None (occurrence: None)
  Receive Date: 20091216
  Receipt Date: 20091210
  Transmission Date: 20100525
  Serious: Yes (Other)
  Sender: FDA-Public Use
  Company Number: DE-BAYER-200938151GPV

PATIENT
  Age: 36 Year
  Sex: Male

DRUGS (3)
  1. ASPIRIN [Suspect]
     Indication: CEREBRAL INFARCTION
     Dosage: TOTAL DAILY DOSE: 100 MG
     Route: 048
     Dates: start: 20070601
  2. LISINOPRIL [Concomitant]
     Indication: HYPERTENSION
     Dosage: TOTAL DAILY DOSE: 2.5 MG  UNIT DOSE: 5 MG
     Route: 048
     Dates: start: 20050101
  3. SPASMEX [Concomitant]
     Indication: MICTURITION URGENCY
     Dosage: TOTAL DAILY DOSE: 30 MG  UNIT DOSE: 30 MG
     Route: 048
     Dates: start: 20090601

REACTIONS (1)
  - PEYRONIE'S DISEASE [None]
